FAERS Safety Report 7331140-5 (Version None)
Quarter: 2011Q1

REPORT INFORMATION
  Report Type: 
  Country: None (occurrence: None)
  Receive Date: 20110304
  Receipt Date: 20110218
  Transmission Date: 20110831
  Serious: Yes (Hospitalization)
  Sender: FDA-Public Use
  Company Number: GB-RANBAXY-2011R1-41979

PATIENT
  Age: 24 Year
  Sex: Male

DRUGS (8)
  1. OMEPRAZOLE [Concomitant]
     Indication: PRODUCT USED FOR UNKNOWN INDICATION
     Dosage: 40 MG, QD
     Route: 065
  2. FLUOXETINE [Suspect]
     Indication: ANXIETY
  3. CITALOPRAM [Suspect]
     Indication: ANXIETY
     Dosage: 20 MG, UNK
     Route: 048
     Dates: start: 20110128, end: 20110208
  4. SERETIDE [Concomitant]
     Indication: PRODUCT USED FOR UNKNOWN INDICATION
     Dosage: UNK
     Route: 065
  5. CITALOPRAM [Suspect]
     Indication: OBSESSIVE-COMPULSIVE DISORDER
  6. FLUOXETINE [Suspect]
     Indication: OBSESSIVE-COMPULSIVE DISORDER
     Dosage: 20 MG, UNK
     Route: 048
     Dates: start: 20101231, end: 20110127
  7. AMOXICILLIN [Concomitant]
     Indication: PRODUCT USED FOR UNKNOWN INDICATION
     Dosage: UNK
     Route: 065
  8. DICLOFENAC [Concomitant]
     Indication: PRODUCT USED FOR UNKNOWN INDICATION
     Dosage: UNK
     Route: 065

REACTIONS (10)
  - SEROTONIN SYNDROME [None]
  - VOMITING [None]
  - HYPERHIDROSIS [None]
  - FEELING OF BODY TEMPERATURE CHANGE [None]
  - PYREXIA [None]
  - TREMOR [None]
  - CHILLS [None]
  - HEADACHE [None]
  - MUSCLE RIGIDITY [None]
  - MUSCLE TWITCHING [None]
